FAERS Safety Report 8814384 (Version 1)
Quarter: 2012Q4

REPORT INFORMATION
  Report Type: Spontaneous
  Country: US (occurrence: None)
  Receive Date: 20120925
  Receipt Date: 20120925
  Transmission Date: 20130627
  Serious: Yes (Death)
  Sender: FDA-Public Use
  Company Number: TC-023216

PATIENT
  Age: 75 Year
  Sex: Female
  Weight: 68.2 kg

DRUGS (1)
  1. TYVASO (6 MICROGRAM, AEROSOL FOR INHALATION) (TREPROSTINIL SODIUM) [Suspect]
     Indication: PULMONARY HYPERTENSION SECONDARY
     Route: 055
     Dates: start: 20100609

REACTIONS (1)
  - Death [None]
